FAERS Safety Report 8582947-8 (Version None)
Quarter: 2012Q3

REPORT INFORMATION
  Report Type: 
  Country: None (occurrence: None)
  Receive Date: 20120809
  Receipt Date: 20120803
  Transmission Date: 20120928
  Serious: Yes (Hospitalization)
  Sender: FDA-Public Use
  Company Number: JP-PFIZER INC-2012150076

PATIENT
  Age: 70 Year
  Sex: Female
  Weight: 48.9 kg

DRUGS (15)
  1. ATORVASTATIN CALCIUM [Concomitant]
     Indication: HYPERCHOLESTEROLAEMIA
  2. AMLODIPINE BESILATE [Concomitant]
     Indication: HYPERTENSION
     Dosage: UNK
     Dates: start: 20120208
  3. WARFARIN POTASSIUM [Concomitant]
     Indication: PROPHYLAXIS
     Dosage: UNK
     Dates: start: 20120217
  4. NATEGLINIDE [Concomitant]
     Indication: TYPE 2 DIABETES MELLITUS
     Dosage: UNK
     Dates: start: 20120215
  5. TROPICAMIDE [Concomitant]
     Indication: CATARACT
  6. TROPICAMIDE [Concomitant]
     Indication: UVEITIS
     Dosage: UNK
     Dates: start: 20120417
  7. BETAMETHASONE [Concomitant]
     Indication: UVEITIS
     Dosage: UNK
     Dates: start: 20120417
  8. BETAMETHASONE [Concomitant]
     Indication: CATARACT
  9. LEVOFLOXACIN [Concomitant]
     Indication: UVEITIS
     Dosage: UNK
     Dates: start: 20120417
  10. ATROPINE [Concomitant]
     Indication: CATARACT
  11. ATORVASTATIN CALCIUM [Concomitant]
     Indication: HYPERLIPIDAEMIA
     Dosage: UNK
     Dates: start: 20120208
  12. MAGNESIUM OXIDE [Concomitant]
     Indication: PROPHYLAXIS
     Dosage: UNK
     Dates: start: 20120501
  13. LEVOFLOXACIN [Concomitant]
     Indication: CATARACT
  14. ATROPINE [Concomitant]
     Indication: UVEITIS
     Dosage: UNK
     Dates: start: 20120417
  15. CRIZOTINIB [Suspect]
     Indication: NON-SMALL CELL LUNG CANCER
     Dosage: 250 MG, 2X/DAY
     Route: 048
     Dates: start: 20120214, end: 20120620

REACTIONS (1)
  - INTERSTITIAL LUNG DISEASE [None]
